FAERS Safety Report 5243577-9 (Version None)
Quarter: 2007Q1

REPORT INFORMATION
  Report Type: 
  Country: None (occurrence: None)
  Receive Date: 20070220
  Receipt Date: 20070220
  Transmission Date: 20070707
  Serious: No
  Sender: FDA-Public Use
  Company Number: None

PATIENT
  Sex: Female

DRUGS (2)
  1. VASOTEC [Suspect]
  2. ALLEGRA [Suspect]

REACTIONS (3)
  - JOINT SWELLING [None]
  - POLLAKIURIA [None]
  - REACTION TO DRUG EXCIPIENTS [None]
